FAERS Safety Report 18171201 (Version 3)
Quarter: 2023Q2

REPORT INFORMATION
  Report Type: Spontaneous
  Country: US (occurrence: US)
  Receive Date: 20200819
  Receipt Date: 20230508
  Transmission Date: 20230722
  Serious: Yes (Hospitalization, Other)
  Sender: FDA-Public Use
  Company Number: US-GILEAD-2020-0489986

PATIENT
  Sex: Male
  Weight: 70.3 kg

DRUGS (28)
  1. VIREAD [Suspect]
     Active Substance: TENOFOVIR DISOPROXIL FUMARATE
     Indication: HIV infection
     Dosage: UNK
     Route: 048
     Dates: start: 2003, end: 2006
  2. BIKTARVY [Concomitant]
     Active Substance: BICTEGRAVIR SODIUM\EMTRICITABINE\TENOFOVIR ALAFENAMIDE FUMARATE
     Indication: HIV infection
     Dosage: UNK
     Dates: start: 201805
  3. NORVIR [Concomitant]
     Active Substance: RITONAVIR
  4. PREZISTA [Concomitant]
     Active Substance: DARUNAVIR ETHANOLATE
  5. SUSTIVA [Concomitant]
     Active Substance: EFAVIRENZ
  6. AMOXICILLIN\CLAVULANIC ACID [Concomitant]
     Active Substance: AMOXICILLIN\CLAVULANIC ACID
     Indication: Bacterial infection
     Dosage: UNK
     Dates: start: 201608, end: 201608
  7. ANASTROZOLE [Concomitant]
     Active Substance: ANASTROZOLE
     Indication: Chemotherapy
     Dosage: UNK
     Dates: start: 201806, end: 201811
  8. ANDROGEL [Concomitant]
     Active Substance: TESTOSTERONE
     Indication: Hormone replacement therapy
     Dosage: UNK
     Dates: start: 201803, end: 201904
  9. ARIMIDEX [Concomitant]
     Active Substance: ANASTROZOLE
     Indication: Hypogonadism
     Dosage: UNK
     Dates: start: 201810
  10. AZITHROMYCIN ANHYDROUS [Concomitant]
     Active Substance: AZITHROMYCIN ANHYDROUS
     Indication: Bacterial infection
     Dosage: UNK
     Dates: start: 202007, end: 202007
  11. CEPHADROXIL [Concomitant]
     Indication: Bacterial infection
     Dosage: UNK
     Dates: start: 201901, end: 201901
  12. COLCRYS [Concomitant]
     Active Substance: COLCHICINE
     Dosage: UNK
     Dates: start: 201811, end: 201812
  13. DICLOFENAC [Concomitant]
     Active Substance: DICLOFENAC
     Indication: Pain
     Dosage: UNK
     Dates: start: 202004, end: 202008
  14. EPZICOM [Concomitant]
     Active Substance: ABACAVIR SULFATE\LAMIVUDINE
     Indication: HIV infection
  15. LAMICTAL [Concomitant]
     Active Substance: LAMOTRIGINE
     Indication: Seizure
     Dosage: UNK
     Dates: start: 201905, end: 201906
  16. LAMOTRIGINE [Concomitant]
     Active Substance: LAMOTRIGINE
  17. LEVOFLOXACIN [Concomitant]
     Active Substance: LEVOFLOXACIN
     Indication: Bacterial infection
     Dosage: UNK
     Dates: start: 201808, end: 201808
  18. LIDOCAINE [Concomitant]
     Active Substance: LIDOCAINE
     Indication: Pain
     Dosage: UNK
     Dates: start: 202004, end: 202005
  19. METRONIDAZOLE [Concomitant]
     Active Substance: METRONIDAZOLE
     Indication: Bacterial infection
     Dosage: UNK
     Dates: start: 201808, end: 201808
  20. MIRTAZAPINE [Concomitant]
     Active Substance: MIRTAZAPINE
     Indication: Depression
     Dosage: UNK
     Dates: start: 201109, end: 201212
  21. MUPIROCIN [Concomitant]
     Active Substance: MUPIROCIN
     Indication: Bacterial infection
     Dosage: UNK
     Dates: start: 201804, end: 201810
  22. CROFELEMER [Concomitant]
     Active Substance: CROFELEMER
     Indication: Diarrhoea
     Dosage: UNK
     Dates: start: 201808, end: 201809
  23. OXANDRIN [Concomitant]
     Active Substance: OXANDROLONE
     Dosage: UNK
     Dates: start: 201709, end: 201803
  24. OXANDROLONE [Concomitant]
     Active Substance: OXANDROLONE
  25. TESTOSTERONE [Concomitant]
     Active Substance: TESTOSTERONE
  26. TIZANIDINE HYDROCHLORIDE [Concomitant]
     Active Substance: TIZANIDINE HYDROCHLORIDE
     Indication: Muscle relaxant therapy
     Dosage: UNK
     Dates: start: 202004, end: 202005
  27. VALACYCLOVIR HYDROCHLORIDE [Concomitant]
     Active Substance: VALACYCLOVIR HYDROCHLORIDE
     Indication: Viral infection
     Dosage: UNK
     Dates: start: 202002, end: 202003
  28. VITAMIN D NOS [Concomitant]
     Active Substance: VITAMIN D NOS
     Indication: Vitamin supplementation
     Dosage: UNK
     Dates: start: 201612

REACTIONS (5)
  - Chronic kidney disease [Not Recovered/Not Resolved]
  - Anhedonia [Not Recovered/Not Resolved]
  - Emotional distress [Recovered/Resolved]
  - Pain [Recovered/Resolved]
  - Anxiety [Not Recovered/Not Resolved]

NARRATIVE: CASE EVENT DATE: 20060101
